FAERS Safety Report 5755961-5 (Version None)
Quarter: 2008Q2

REPORT INFORMATION
  Report Type: 
  Country: None (occurrence: None)
  Receive Date: 20080528
  Receipt Date: 20080519
  Transmission Date: 20081010
  Serious: Yes (Hospitalization)
  Sender: FDA-Public Use
  Company Number: 2008AP001251

PATIENT
  Age: 40 Year
  Sex: Male

DRUGS (2)
  1. CARBAMAZEPINE [Suspect]
     Indication: EPILEPSY
  2. FLOXACILLIN SODIUM [Suspect]
     Indication: SKIN LACERATION
     Dosage: PO
     Route: 048

REACTIONS (8)
  - ANGLE CLOSURE GLAUCOMA [None]
  - CHOROIDAL EFFUSION [None]
  - CORNEAL OEDEMA [None]
  - DRUG INTERACTION [None]
  - FLAT ANTERIOR CHAMBER OF EYE [None]
  - PUPIL FIXED [None]
  - VISUAL ACUITY REDUCED [None]
  - VISUAL FIELD DEFECT [None]
